FAERS Safety Report 5852862-9 (Version None)
Quarter: 2008Q3

REPORT INFORMATION
  Report Type: 
  Country: None (occurrence: None)
  Receive Date: 20080814
  Receipt Date: 20070907
  Transmission Date: 20090109
  Serious: Yes (Hospitalization)
  Sender: FDA-Public Use
  Company Number: 2007ST000187

PATIENT
  Age: 4 Year
  Sex: Male

DRUGS (1)
  1. ZEGERID [Suspect]
     Dosage: 10 MG;BID;PO
     Route: 048
     Dates: start: 20070901

REACTIONS (1)
  - CONVULSION [None]
